FAERS Safety Report 7235382-9 (Version None)
Quarter: 2011Q1

REPORT INFORMATION
  Report Type: 
  Country: None (occurrence: None)
  Receive Date: 20110110
  Receipt Date: 20110104
  Transmission Date: 20110831
  Serious: Yes (Hospitalization)
  Sender: FDA-Public Use
  Company Number: 024740

PATIENT
  Sex: Female

DRUGS (5)
  1. MALOCIDE /00112501/ (MALOCIDE) [Suspect]
     Indication: CEREBRAL TOXOPLASMOSIS
     Dosage: (50 MG QD ORAL)
     Route: 048
     Dates: start: 20101023
  2. KEPPRA [Suspect]
     Indication: EPILEPSY
     Dosage: (500 MG BID ORAL)
     Route: 048
     Dates: start: 20101026
  3. FOLINORAL (FOLINORAL) (NOT SPECIFIED) [Suspect]
     Indication: CEREBRAL TOXOPLASMOSIS
     Dosage: (25 MG QD ORAL)
     Route: 048
     Dates: start: 20101023
  4. URGANYL (URGANYL) (NOT SPECIFIED) [Suspect]
     Indication: EPILEPSY
     Dosage: (5 MG QD ORAL)
     Route: 048
     Dates: start: 20101025
  5. ADIAZINE (ADIAZINE) [Suspect]
     Indication: CEREBRAL TOXOPLASMOSIS
     Dosage: (500 MG 8X/DAY ORAL)
     Route: 048
     Dates: start: 20101023, end: 20101101

REACTIONS (4)
  - PYREXIA [None]
  - LEUKOPENIA [None]
  - NEUTROPENIA [None]
  - CYTOLYTIC HEPATITIS [None]
